FAERS Safety Report 19292757 (Version 1)
Quarter: 2021Q2

REPORT INFORMATION
  Report Type: Other
  Country: CA (occurrence: CA)
  Receive Date: 20210524
  Receipt Date: 20210524
  Transmission Date: 20210717
  Serious: Yes (Hospitalization, Other)
  Sender: FDA-Public Use
  Company Number: CA-ROCHE-2832043

PATIENT
  Age: 58 Year
  Sex: Female

DRUGS (9)
  1. DARBEPOETIN ALFA [Concomitant]
     Active Substance: DARBEPOETIN ALFA
     Indication: ANAEMIA
  2. FILGRASTIM [Concomitant]
     Active Substance: FILGRASTIM
     Indication: NEUTROPENIA
     Dates: end: 20200404
  3. SEPTRA DS [Concomitant]
     Active Substance: SULFAMETHOXAZOLE\TRIMETHOPRIM
     Indication: ANTIFUNGAL PROPHYLAXIS
     Dosage: 160 MG TRIMETHOPRIM AND 800 MG SULFAMETHOXAZOLE
  4. GANCICLOVIR. [Concomitant]
     Active Substance: GANCICLOVIR
     Route: 042
     Dates: start: 20200123
  5. FLUDARABINE [Suspect]
     Active Substance: FLUDARABINE PHOSPHATE
     Indication: CHRONIC LYMPHOCYTIC LEUKAEMIA
     Route: 065
     Dates: start: 20190320, end: 20191111
  6. CYCLOPHOSPHAMIDE. [Suspect]
     Active Substance: CYCLOPHOSPHAMIDE
     Indication: CHRONIC LYMPHOCYTIC LEUKAEMIA
     Route: 065
     Dates: start: 20190320, end: 20191111
  7. PROBENECID. [Concomitant]
     Active Substance: PROBENECID
     Dosage: 1 HOUR BEFORE CIDOFOVIR, THEN 2 HOURS AND 8 HOURS AFTER THE END OF INFUSION TO INCREASE CIDOFOVIR LE
     Route: 048
  8. VALACYCLOVIR [Concomitant]
     Active Substance: VALACYCLOVIR HYDROCHLORIDE
     Indication: ANTIVIRAL PROPHYLAXIS
     Route: 048
  9. RITUXIMAB. [Suspect]
     Active Substance: RITUXIMAB
     Indication: CHRONIC LYMPHOCYTIC LEUKAEMIA
     Route: 065
     Dates: start: 20190320, end: 20191111

REACTIONS (7)
  - Cytomegalovirus infection [Unknown]
  - Pyelitis [Unknown]
  - Polyomavirus viraemia [Unknown]
  - Cystitis [Unknown]
  - Urinary tract infection [Recovering/Resolving]
  - Cystitis haemorrhagic [Recovered/Resolved]
  - Viraemia [Unknown]
